FAERS Safety Report 14704814 (Version 2)
Quarter: 2018Q2

REPORT INFORMATION
  Report Type: Spontaneous
  Country: US (occurrence: US)
  Receive Date: 20180402
  Receipt Date: 20180504
  Transmission Date: 20180711
  Serious: No
  Sender: FDA-Public Use
  Company Number: US-JNJFOC-20180327076

PATIENT
  Age: 30 Year
  Sex: Male
  Weight: 127.01 kg

DRUGS (19)
  1. LEVOTHYROXINE. [Concomitant]
     Active Substance: LEVOTHYROXINE
     Route: 065
  2. LISINOPRIL. [Concomitant]
     Active Substance: LISINOPRIL
     Route: 065
     Dates: start: 201509
  3. LIPITOR [Concomitant]
     Active Substance: ATORVASTATIN CALCIUM
     Indication: HYPERLIPIDAEMIA
     Route: 065
     Dates: start: 201405
  4. XYLOCAINE [Concomitant]
     Active Substance: LIDOCAINE HYDROCHLORIDE
     Indication: RASH PRURITIC
     Route: 065
     Dates: start: 201603
  5. VALIUM [Concomitant]
     Active Substance: DIAZEPAM
     Indication: ANXIETY
     Dosage: 5 MG TWICE DAILY AS NEEDED
     Route: 065
  6. RISPERDAL CONSTA [Suspect]
     Active Substance: RISPERIDONE
     Indication: SCHIZOPHRENIA
     Route: 030
     Dates: start: 2005
  7. GLUCOPHAGE [Concomitant]
     Active Substance: METFORMIN HYDROCHLORIDE
     Indication: DIABETES MELLITUS
     Route: 065
     Dates: start: 201503
  8. ATIVAN [Concomitant]
     Active Substance: LORAZEPAM
     Indication: ANXIETY
     Route: 065
     Dates: start: 200809
  9. LAC-HYDRIN [Concomitant]
     Active Substance: AMMONIUM LACTATE
     Indication: SKIN IRRITATION
     Route: 065
     Dates: start: 201303
  10. ZYPREXA [Concomitant]
     Active Substance: OLANZAPINE
     Indication: ATTENTION DEFICIT/HYPERACTIVITY DISORDER
     Route: 065
     Dates: start: 200708
  11. OMEGA 3 [Concomitant]
     Active Substance: OMEGA-3 FATTY ACIDS
     Route: 065
     Dates: start: 201505
  12. MELATONIN [Concomitant]
     Active Substance: MELATONIN
     Indication: SLEEP DISORDER
     Route: 065
     Dates: start: 201403
  13. DEPAKOTE [Concomitant]
     Active Substance: DIVALPROEX SODIUM
     Dosage: 750 MG IN MORNING AND 1000 MG AT BEDTIME
     Route: 065
  14. ZYPREXA [Concomitant]
     Active Substance: OLANZAPINE
     Indication: OPPOSITIONAL DEFIANT DISORDER
     Route: 065
     Dates: start: 200708
  15. ZYPREXA [Concomitant]
     Active Substance: OLANZAPINE
     Indication: FOETAL ALCOHOL SYNDROME
     Route: 065
     Dates: start: 200708
  16. VOLTAREN [Concomitant]
     Active Substance: DICLOFENAC SODIUM
     Indication: ARTHRALGIA
     Dosage: UP TO 4 TIMES
     Route: 065
     Dates: start: 201509
  17. METROGEL [Concomitant]
     Active Substance: METRONIDAZOLE
     Indication: ACNE
     Route: 065
     Dates: start: 201107
  18. ARTANE [Concomitant]
     Active Substance: TRIHEXYPHENIDYL HYDROCHLORIDE
     Route: 065
  19. ZYPREXA [Concomitant]
     Active Substance: OLANZAPINE
     Indication: SCHIZOPHRENIA
     Route: 065
     Dates: start: 200708

REACTIONS (5)
  - Drug dose omission [Unknown]
  - Device occlusion [Unknown]
  - Product use issue [Unknown]
  - Off label use [Unknown]
  - Device leakage [Unknown]

NARRATIVE: CASE EVENT DATE: 2005
